FAERS Safety Report 21158084 (Version 1)
Quarter: 2022Q3

REPORT INFORMATION
  Report Type: Spontaneous
  Country: None (occurrence: GB)
  Receive Date: 20220801
  Receipt Date: 20220801
  Transmission Date: 20221026
  Serious: Yes (Death)
  Sender: FDA-Public Use
  Company Number: GB-B.Braun Medical Inc.-2131432

PATIENT
  Age: 65 Year
  Sex: Male

DRUGS (27)
  1. ACETAMINOPHEN [Suspect]
     Active Substance: ACETAMINOPHEN
  2. PIPERACILLIN SODIUM\TAZOBACTAM SODIUM [Suspect]
     Active Substance: PIPERACILLIN SODIUM\TAZOBACTAM SODIUM
  3. INSULIN HUMAN [Suspect]
     Active Substance: INSULIN HUMAN
  4. AMOXICILLIN\CLAVULANATE POTASSIUM [Suspect]
     Active Substance: AMOXICILLIN\CLAVULANATE POTASSIUM
  5. KETAMINE [Suspect]
     Active Substance: KETAMINE
  6. REMDESIVIR [Suspect]
     Active Substance: REMDESIVIR
  7. TINZAPARIN [Suspect]
     Active Substance: TINZAPARIN
  8. MAGNESIUM [Suspect]
     Active Substance: MAGNESIUM
  9. CLARITHROMYCIN [Suspect]
     Active Substance: CLARITHROMYCIN
  10. DEXAMETHASONE [Suspect]
     Active Substance: DEXAMETHASONE
  11. METOCLOPRAMIDE [Suspect]
     Active Substance: METOCLOPRAMIDE
  12. METOCLOPRAMIDE [Suspect]
     Active Substance: METOCLOPRAMIDE
  13. PROPOFOL [Suspect]
     Active Substance: PROPOFOL
  14. ALBUTEROL [Suspect]
     Active Substance: ALBUTEROL
  15. FENTANYL [Suspect]
     Active Substance: FENTANYL
  16. TEICOPLANIN [Suspect]
     Active Substance: TEICOPLANIN
  17. ANIDULAFUNGIN [Suspect]
     Active Substance: ANIDULAFUNGIN
  18. ROCURONIUM [Suspect]
     Active Substance: ROCURONIUM BROMIDE
  19. LANSOPRAZOLE [Suspect]
     Active Substance: LANSOPRAZOLE
  20. LEVOFLOXACIN [Suspect]
     Active Substance: LEVOFLOXACIN
  21. HEPARIN [Suspect]
     Active Substance: HEPARIN SODIUM
  22. GLUCONIC ACID [Suspect]
     Active Substance: GLUCONIC ACID
  23. FUROSEMIDE [Suspect]
     Active Substance: FUROSEMIDE
  24. EPOPROSTENOL [Suspect]
     Active Substance: EPOPROSTENOL
  25. OMEPRAZOLE [Suspect]
     Active Substance: OMEPRAZOLE
  26. MEROPENEM [Suspect]
     Active Substance: MEROPENEM
  27. TOCILIZUMAB [Suspect]
     Active Substance: TOCILIZUMAB

REACTIONS (2)
  - Multiple organ dysfunction syndrome [Fatal]
  - Contraindicated product administered [Fatal]
